FAERS Safety Report 21703533 (Version 1)
Quarter: 2022Q4

REPORT INFORMATION
  Report Type: Spontaneous
  Country: CN (occurrence: CN)
  Receive Date: 20221209
  Receipt Date: 20221209
  Transmission Date: 20230112
  Serious: Yes (Hospitalization, Other)
  Sender: FDA-Public Use
  Company Number: None

PATIENT
  Age: 42 Year
  Sex: Female
  Weight: 63 kg

DRUGS (4)
  1. CYCLOPHOSPHAMIDE [Suspect]
     Active Substance: CYCLOPHOSPHAMIDE
     Indication: Breast cancer female
     Dosage: 839 MG, ONCE DAILY, DILUTED WITH 100 ML OF SODIUM CHLORIDE
     Route: 041
     Dates: start: 20221106, end: 20221106
  2. SODIUM CHLORIDE [Suspect]
     Active Substance: SODIUM CHLORIDE
     Indication: Medication dilution
     Dosage: 90 ML, ONCE DAILY, USED TO DILUTE 436 MG OF PACLITAXEL FOR INJECTION (ALBUMIN BOUND)
     Route: 041
     Dates: start: 20221106, end: 20221106
  3. PACLITAXEL [Suspect]
     Active Substance: PACLITAXEL
     Indication: Breast cancer female
     Dosage: 436 MG, ONCE DAILY, DILUTED WITH 90 ML OF SODIUM CHLORIDE
     Route: 041
     Dates: start: 20221106, end: 20221106
  4. SODIUM CHLORIDE [Concomitant]
     Active Substance: SODIUM CHLORIDE
     Indication: Vehicle solution use
     Dosage: 100 ML, ONCE DAILY, USED TO DILUTE 839 MG OF CYCLOPHOSPHAMIDE
     Route: 041
     Dates: start: 20221106, end: 20221106

REACTIONS (1)
  - Agranulocytosis [Recovering/Resolving]

NARRATIVE: CASE EVENT DATE: 20221116
